FAERS Safety Report 4426298-1 (Version None)
Quarter: 2004Q3

REPORT INFORMATION
  Report Type: 
  Country: None (occurrence: None)
  Receive Date: 20040811
  Receipt Date: 20040806
  Transmission Date: 20050211
  Serious: Yes (Death)
  Sender: FDA-Public Use
  Company Number: J081-002-001697

PATIENT
  Age: 80 Year
  Sex: Male
  Weight: 45 kg

DRUGS (4)
  1. ARICEPT [Suspect]
     Indication: DEMENTIA ALZHEIMER'S TYPE
     Dosage: SEE IMAGE
     Route: 048
     Dates: start: 20020727, end: 20020901
  2. ARICEPT [Suspect]
     Indication: DEMENTIA ALZHEIMER'S TYPE
     Dosage: SEE IMAGE
     Route: 048
     Dates: start: 20020901, end: 20021128
  3. ARICEPT [Suspect]
     Indication: DEMENTIA ALZHEIMER'S TYPE
     Dosage: SEE IMAGE
     Route: 048
     Dates: start: 20021129, end: 20040101
  4. GASLON N (IRSOGLADINE MALEATE) [Concomitant]

REACTIONS (2)
  - SUDDEN DEATH [None]
  - TREATMENT NONCOMPLIANCE [None]
